FAERS Safety Report 23608214 (Version 1)
Quarter: 2024Q1

REPORT INFORMATION
  Report Type: Spontaneous
  Country: PT (occurrence: PT)
  Receive Date: 20240307
  Receipt Date: 20240307
  Transmission Date: 20240410
  Serious: Yes (Hospitalization)
  Sender: FDA-Public Use
  Company Number: PT-SANDOZ-SDZ2024PT021372

PATIENT
  Age: 79 Year
  Sex: Male

DRUGS (1)
  1. ZOLEDRONIC ACID [Suspect]
     Active Substance: ZOLEDRONIC ACID
     Indication: Osteitis deformans
     Dosage: UNK
     Route: 065

REACTIONS (3)
  - Hypocalcaemia [Recovering/Resolving]
  - Vitamin D deficiency [Unknown]
  - Hyperparathyroidism secondary [Unknown]
